FAERS Safety Report 15786969 (Version 2)
Quarter: 2019Q3

REPORT INFORMATION
  Report Type: Spontaneous
  Country: US (occurrence: US)
  Receive Date: 20190103
  Receipt Date: 20190710
  Transmission Date: 20191004
  Serious: Yes (Hospitalization, Other)
  Sender: FDA-Public Use
  Company Number: US-PFIZER INC-2019001496

PATIENT
  Age: 48 Year
  Sex: Female

DRUGS (18)
  1. MSIR [Concomitant]
     Active Substance: MORPHINE SULFATE
     Dosage: 30 MG, 2X/DAY (15 MG, 2 PILLS)
  2. METOPROLOL SUCCINATE. [Concomitant]
     Active Substance: METOPROLOL SUCCINATE
     Dosage: 50 MG, 1X/DAY (PM)
  3. FLEXERIL [CEFIXIME] [Concomitant]
     Active Substance: CEFIXIME
     Indication: MYALGIA
     Dosage: UNK, AS NEEDED
  4. VIT D [Concomitant]
     Active Substance: VITAMIN D NOS
     Dosage: 5000 IU, DAILY
  5. PEPTO-BISMOL [Concomitant]
     Active Substance: BISMUTH SUBSALICYLATE
     Dosage: UNK
  6. TYLENOL EXTRA STRENGTH [Concomitant]
     Active Substance: ACETAMINOPHEN
     Dosage: UNK (OCCASIONALLY)
  7. GABAPENTIN. [Concomitant]
     Active Substance: GABAPENTIN
     Dosage: 600 MG, 2X/DAY
  8. ROSUVASTATIN. [Concomitant]
     Active Substance: ROSUVASTATIN
     Dosage: 5 MG, 1X/DAY (PM)
  9. DURAGESIC [Concomitant]
     Active Substance: FENTANYL
     Dosage: TWO PATCHES ON UPPER THIGH/ONE X 0.75 MCG/HR AND ONE X 1.00 MCG/HR- CHANGE EVERY 3RD DAY
  10. SONATA [CARISOPRODOL] [Concomitant]
     Indication: SLEEP DISORDER
     Dosage: UNK, AS NEEDED
  11. XELJANZ XR [Suspect]
     Active Substance: TOFACITINIB CITRATE
     Indication: RHEUMATOID ARTHRITIS
     Dosage: 11 MG, 1X/DAY
     Route: 048
     Dates: start: 2015
  12. LAMOTRIGINE. [Concomitant]
     Active Substance: LAMOTRIGINE
     Dosage: 100 MG, 2X/DAY
  13. WAL-FOUR [Concomitant]
     Dosage: UNK
     Route: 045
  14. ALEVE [Concomitant]
     Active Substance: NAPROXEN SODIUM
     Dosage: 220 MG, UNK [(OCCASIONALLY)]
  15. OXYBUTYNIN. [Concomitant]
     Active Substance: OXYBUTYNIN CHLORIDE
     Dosage: UNK, 1X/DAY
  16. ZANTAC [Concomitant]
     Active Substance: RANITIDINE HYDROCHLORIDE
     Dosage: UNK, 2X/DAY (150 2X/DAY)
  17. PREDNISONE. [Concomitant]
     Active Substance: PREDNISONE
     Dosage: 5 MG, 1X/DAY (AM)
  18. PAROXETINE HCL [Concomitant]
     Active Substance: PAROXETINE HYDROCHLORIDE
     Dosage: 40 MG, 1X/DAY (PM)

REACTIONS (5)
  - Pneumonia aspiration [Recovered/Resolved]
  - Fungal skin infection [Recovered/Resolved]
  - Blood cholesterol increased [Not Recovered/Not Resolved]
  - Weight decreased [Not Recovered/Not Resolved]
  - Nasal congestion [Not Recovered/Not Resolved]

NARRATIVE: CASE EVENT DATE: 20181029
